FAERS Safety Report 12776613 (Version 1)
Quarter: 2016Q3

REPORT INFORMATION
  Report Type: Report from Study
  Country: DE (occurrence: DE)
  Receive Date: 20160923
  Receipt Date: 20160923
  Transmission Date: 20161109
  Serious: Yes (Hospitalization)
  Sender: FDA-Public Use
  Company Number: US-ASTRAZENECA-2016SF01601

PATIENT
  Age: 154 Day
  Sex: Female

DRUGS (8)
  1. SYNAGIS [Suspect]
     Active Substance: PALIVIZUMAB
     Indication: ANTIVIRAL PROPHYLAXIS
     Dosage: 87.0MG UNKNOWN
     Route: 030
     Dates: start: 20100112, end: 20100112
  2. SYNAGIS [Suspect]
     Active Substance: PALIVIZUMAB
     Indication: ANTIVIRAL PROPHYLAXIS
     Dosage: 30.0MG UNKNOWN
     Route: 030
     Dates: start: 20090915, end: 20090915
  3. SYNAGIS [Suspect]
     Active Substance: PALIVIZUMAB
     Indication: ANTIVIRAL PROPHYLAXIS
     Dosage: 90.0MG UNKNOWN
     Route: 030
     Dates: start: 20100217, end: 20100217
  4. SYNAGIS [Suspect]
     Active Substance: PALIVIZUMAB
     Indication: ANTIVIRAL PROPHYLAXIS
     Dosage: 62.0MG UNKNOWN
     Route: 030
     Dates: start: 20091117, end: 20091117
  5. SYNAGIS [Suspect]
     Active Substance: PALIVIZUMAB
     Indication: ANTIVIRAL PROPHYLAXIS
     Dosage: 104.0MG UNKNOWN
     Route: 030
     Dates: start: 20100316, end: 20100316
  6. SYNAGIS [Suspect]
     Active Substance: PALIVIZUMAB
     Indication: ANTIVIRAL PROPHYLAXIS
     Dosage: 77.0MG UNKNOWN
     Route: 030
     Dates: start: 20091215, end: 20091215
  7. SYNAGIS [Suspect]
     Active Substance: PALIVIZUMAB
     Indication: ANTIVIRAL PROPHYLAXIS
     Dosage: 120.0MG UNKNOWN
     Route: 030
     Dates: start: 20100414, end: 20100414
  8. SYNAGIS [Suspect]
     Active Substance: PALIVIZUMAB
     Indication: ANTIVIRAL PROPHYLAXIS
     Dosage: 47.0MG UNKNOWN
     Route: 030
     Dates: start: 20091020, end: 20091020

REACTIONS (2)
  - Neonatal infection [Unknown]
  - Pneumonia [Unknown]

NARRATIVE: CASE EVENT DATE: 201001
